FAERS Safety Report 13637215 (Version 2)
Quarter: 2017Q4

REPORT INFORMATION
  Report Type: Spontaneous
  Country: US (occurrence: US)
  Receive Date: 20170609
  Receipt Date: 20171217
  Transmission Date: 20180320
  Serious: No
  Sender: FDA-Public Use
  Company Number: US-LUNDBECK-DKLU2032190

PATIENT
  Age: 73 Year
  Sex: Female

DRUGS (5)
  1. NORTHERA [Suspect]
     Active Substance: DROXIDOPA
     Dosage: PER 48 HOUR TITRATION SCHEDULE ON ENCLOSED DOSING GUIDE
     Route: 048
     Dates: start: 20170517, end: 20170604
  2. NORTHERA [Suspect]
     Active Substance: DROXIDOPA
     Route: 065
  3. NORTHERA [Suspect]
     Active Substance: DROXIDOPA
     Indication: SYNCOPE
     Dosage: B AND TITRATING
     Route: 065
     Dates: start: 20170518
  4. NORTHERA [Suspect]
     Active Substance: DROXIDOPA
     Indication: PARKINSON^S DISEASE
     Route: 065
  5. NORTHERA [Suspect]
     Active Substance: DROXIDOPA
     Route: 048
     Dates: start: 20170518, end: 20170604

REACTIONS (7)
  - Musculoskeletal pain [Not Recovered/Not Resolved]
  - Feeling hot [Unknown]
  - Hypertension [Unknown]
  - Nausea [Not Recovered/Not Resolved]
  - Night sweats [Unknown]
  - Muscle rigidity [Unknown]
  - Headache [Unknown]

NARRATIVE: CASE EVENT DATE: 20170525
